FAERS Safety Report 7347320-9 (Version None)
Quarter: 2011Q1

REPORT INFORMATION
  Report Type: 
  Country: None (occurrence: None)
  Receive Date: 20110311
  Receipt Date: 20110228
  Transmission Date: 20110831
  Serious: Yes (Hospitalization)
  Sender: FDA-Public Use
  Company Number: DE-B.I. PHARMACEUTICALS,INC./RIDGEFIELD-2011-DE-01382DE

PATIENT
  Sex: Male
  Weight: 55 kg

DRUGS (2)
  1. NEVIRAPINE [Suspect]
     Indication: HIV INFECTION
     Dosage: 400 MG
     Route: 048
     Dates: start: 20090203
  2. COMBIVIR [Suspect]
     Indication: HIV INFECTION
     Dosage: 2 ANZ
     Route: 048
     Dates: start: 19980128

REACTIONS (1)
  - PNEUMONIA [None]
